APPROVED DRUG PRODUCT: MANNITOL 20%
Active Ingredient: MANNITOL
Strength: 20GM/100ML
Dosage Form/Route: INJECTABLE;INJECTION
Application: N016269 | Product #004
Applicant: HOSPIRA INC
Approved: Approved Prior to Jan 1, 1982 | RLD: No | RS: No | Type: DISCN